FAERS Safety Report 10965635 (Version 1)
Quarter: 2015Q1

REPORT INFORMATION
  Report Type: Spontaneous
  Country: US (occurrence: US)
  Receive Date: 20150330
  Receipt Date: 20150330
  Transmission Date: 20150721
  Serious: No
  Sender: FDA-Public Use
  Company Number: US-009507513-1503USA009104

PATIENT
  Sex: Female

DRUGS (4)
  1. TICE BCG [Suspect]
     Active Substance: BACILLUS CALMETTE-GUERIN SUBSTRAIN TICE LIVE ANTIGEN
     Indication: BLADDER CANCER
     Dosage: 50 MG, UNK
     Dates: start: 2012
  2. BYSTOLIC [Concomitant]
     Active Substance: NEBIVOLOL HYDROCHLORIDE
     Dosage: UNKNOWN
  3. ASPIRIN. [Concomitant]
     Active Substance: ASPIRIN
     Dosage: UNKNOWN
  4. TICE BCG [Suspect]
     Active Substance: BACILLUS CALMETTE-GUERIN SUBSTRAIN TICE LIVE ANTIGEN
     Dosage: 25 MG, QW
     Dates: start: 2012

REACTIONS (6)
  - Dysuria [Unknown]
  - Soft tissue haemorrhage [Unknown]
  - Abdominal pain upper [Unknown]
  - Drug ineffective [Unknown]
  - Chills [Unknown]
  - Nocturia [Unknown]

NARRATIVE: CASE EVENT DATE: 2012
